FAERS Safety Report 16433799 (Version 1)
Quarter: 2019Q2

REPORT INFORMATION
  Report Type: Spontaneous
  Country: US (occurrence: US)
  Receive Date: 20190614
  Receipt Date: 20190614
  Transmission Date: 20190711
  Serious: No
  Sender: FDA-Public Use
  Company Number: US-JNJFOC-20170113401

PATIENT
  Sex: Male

DRUGS (3)
  1. RISPERDAL [Suspect]
     Active Substance: RISPERIDONE
     Indication: SCHIZOPHRENIA
     Dosage: IN VARYING DOSES OF 0.5, 1 AND 2 MG
     Route: 048
     Dates: start: 2006, end: 2012
  2. RISPERDAL [Suspect]
     Active Substance: RISPERIDONE
     Indication: BIPOLAR DISORDER
     Dosage: IN VARYING DOSES OF 0.5, 1 AND 2 MG
     Route: 048
     Dates: start: 2006, end: 2012
  3. RISPERDAL [Suspect]
     Active Substance: RISPERIDONE
     Indication: PANIC DISORDER
     Dosage: IN VARYING DOSES OF 0.5, 1 AND 2 MG
     Route: 048
     Dates: start: 2006, end: 2012

REACTIONS (2)
  - Drug ineffective [Unknown]
  - Gynaecomastia [Unknown]
